FAERS Safety Report 6690033-7 (Version None)
Quarter: 2010Q2

REPORT INFORMATION
  Report Type: 
  Country: None (occurrence: None)
  Receive Date: 20100421
  Receipt Date: 20100412
  Transmission Date: 20101027
  Serious: Yes (Other)
  Sender: FDA-Public Use
  Company Number: PHHY2010JP23738

PATIENT

DRUGS (3)
  1. ZOMETA [Suspect]
     Indication: METASTASES TO BONE
     Route: 042
  2. FURTULON [Concomitant]
  3. HYSRON [Concomitant]
     Dosage: UNK

REACTIONS (1)
  - JAW DISORDER [None]
